FAERS Safety Report 7073561-4 (Version None)
Quarter: 2010Q4

REPORT INFORMATION
  Report Type: 
  Country: None (occurrence: None)
  Receive Date: 20101029
  Receipt Date: 20100709
  Transmission Date: 20110411
  Serious: No
  Sender: FDA-Public Use
  Company Number: A0869499A

PATIENT
  Age: 86 Year
  Sex: Male

DRUGS (6)
  1. ADVAIR DISKUS 100/50 [Suspect]
     Indication: RESPIRATORY DISORDER
     Dosage: 1PUFF PER DAY
     Route: 055
  2. FLUTICASONE PROPIONATE [Concomitant]
  3. UNKNOWN MEDICATION [Concomitant]
  4. PRAVASTATIN [Concomitant]
  5. SINGULAIR [Concomitant]
  6. ASPIRIN [Concomitant]

REACTIONS (1)
  - BRONCHOSTENOSIS [None]
